FAERS Safety Report 10086372 (Version 4)
Quarter: 2014Q4

REPORT INFORMATION
  Report Type: Spontaneous
  Country: DK (occurrence: US)
  Receive Date: 20140418
  Receipt Date: 20141008
  Transmission Date: 20150528
  Serious: Yes (Hospitalization)
  Sender: FDA-Public Use
  Company Number: US-FRI-1000051980

PATIENT
  Age: 43 Year
  Sex: Female

DRUGS (9)
  1. LUAF41156 [Suspect]
     Active Substance: BREXPIPRAZOLE
     Dosage: 1 MG
     Route: 048
     Dates: start: 20121206, end: 20121213
  2. LUAF41156 [Suspect]
     Active Substance: BREXPIPRAZOLE
     Indication: MAJOR DEPRESSION
     Dosage: 3 MG
     Route: 048
     Dates: start: 20121228, end: 20131101
  3. LUAF41156 [Suspect]
     Active Substance: BREXPIPRAZOLE
     Dosage: 2 MG
     Route: 048
     Dates: start: 20121214, end: 20121227
  4. TYLENOL [Concomitant]
     Active Substance: ACETAMINOPHEN
     Indication: MIGRAINE
     Dosage: 400 MG
     Route: 048
     Dates: start: 1982
  5. IMITREX [Concomitant]
     Active Substance: SUMATRIPTAN\SUMATRIPTAN SUCCINATE
     Indication: MIGRAINE
     Dosage: 50 MG, UNK
     Route: 048
     Dates: start: 1998
  6. ESCITALOPRAM [Suspect]
     Active Substance: ESCITALOPRAM OXALATE
     Indication: MAJOR DEPRESSION
     Dosage: 20 MG
     Route: 048
     Dates: start: 20120824
  7. LUAF41156 [Suspect]
     Active Substance: BREXPIPRAZOLE
     Dosage: 3 MG
     Route: 048
     Dates: start: 20131109, end: 20131127
  8. VENTOLIN [Concomitant]
     Active Substance: ALBUTEROL SULFATE
     Indication: DYSPNOEA
     Dosage: 10 MCG, UNK
     Dates: start: 2010
  9. LUAF41156 [Suspect]
     Active Substance: BREXPIPRAZOLE
     Dosage: .50 UNK, DAILY DOSE
     Route: 048
     Dates: start: 20121129, end: 20121205

REACTIONS (3)
  - Toxicity to various agents [None]
  - Hepatitis acute [Recovered/Resolved]
  - Pancreatitis [None]

NARRATIVE: CASE EVENT DATE: 20131101
